FAERS Safety Report 19069311 (Version 8)
Quarter: 2021Q3

REPORT INFORMATION
  Report Type: Report from Study
  Country: CN (occurrence: CN)
  Receive Date: 20210329
  Receipt Date: 20210907
  Transmission Date: 20211014
  Serious: Yes (Hospitalization)
  Sender: FDA-Public Use
  Company Number: CN-ROCHE-2794056

PATIENT
  Age: 60 Year
  Sex: Male
  Weight: 78 kg

DRUGS (19)
  1. OMEPRAZOLE. [Concomitant]
     Active Substance: OMEPRAZOLE
     Indication: GASTRITIS
     Dates: start: 20210104
  2. RABEPRAZOLE SODIUM. [Concomitant]
     Active Substance: RABEPRAZOLE SODIUM
     Indication: ABDOMINAL PAIN UPPER
     Dates: start: 20210113, end: 20210307
  3. VITAMIN B12 [Concomitant]
     Active Substance: CYANOCOBALAMIN
     Dates: start: 20210302, end: 20210302
  4. ATEZOLIZUMAB. [Suspect]
     Active Substance: ATEZOLIZUMAB
     Indication: NON-SMALL CELL LUNG CANCER STAGE IV
     Dosage: DOSE LAST STUDY DRUG ADMIN PRIOR AE IS 1200 MG
     Route: 041
     Dates: start: 20201229
  5. ATORVASTATIN CALCIUM. [Concomitant]
     Active Substance: ATORVASTATIN CALCIUM
     Indication: CORONARY ARTERY DISEASE
     Dates: start: 2018
  6. DOMPERIDONE [Concomitant]
     Active Substance: DOMPERIDONE
     Indication: GASTRITIS
     Dates: start: 20201231
  7. DEXAMETHASONE ACETATE [Concomitant]
     Active Substance: DEXAMETHASONE ACETATE
     Indication: PROPHYLAXIS
     Route: 048
     Dates: start: 20210301, end: 20210303
  8. APREPITANT. [Concomitant]
     Active Substance: APREPITANT
     Dates: start: 20210302, end: 20210302
  9. ASPIRIN ENTERIC?COATED [Concomitant]
     Indication: CORONARY ARTERY DISEASE
     Dates: start: 2018, end: 20210507
  10. FOLIC ACID. [Concomitant]
     Active Substance: FOLIC ACID
     Dates: start: 20201221
  11. LACTULOSE. [Concomitant]
     Active Substance: LACTULOSE
     Indication: CONSTIPATION
     Dates: start: 20210101
  12. MUCOPOLYSACCHARIDE POLYSULFATE [Concomitant]
     Dates: start: 20210120
  13. PEMETREXED. [Suspect]
     Active Substance: PEMETREXED
     Indication: NON-SMALL CELL LUNG CANCER STAGE IV
     Dosage: ON 02/MAR/2021, HE RECEIVED MOST RECENT DOSE OF PEMETREXED (970 MG) PRIOR TO ONSET OF SERIOUS ADVERS
     Route: 042
     Dates: start: 20201229
  14. BEVACIZUMAB. [Suspect]
     Active Substance: BEVACIZUMAB
     Indication: NON-SMALL CELL LUNG CANCER STAGE IV
     Dosage: ON 02/MAR/2021, HE RECEIVED MOST RECENT DOSE OF BEVACIZUMAB (1200 MG) PRIOR TO ONSET OF SERIOUS ADVE
     Route: 042
     Dates: start: 20201229
  15. CARBOPLATIN. [Suspect]
     Active Substance: CARBOPLATIN
     Indication: NON-SMALL CELL LUNG CANCER STAGE IV
     Dosage: ON 02/MAR/2021, HE RECEIVED OF MOST RECENT DOSE OF CARBOPLATIN (750 MG) PRIOR TO ONSET OF SERIOUS AD
     Route: 042
     Dates: start: 20201229
  16. DEXAMETHASONE ACETATE [Concomitant]
     Active Substance: DEXAMETHASONE ACETATE
     Route: 048
     Dates: start: 20210322, end: 20210324
  17. TROPISETRON HYDROCHLORIDE [Concomitant]
     Active Substance: TROPISETRON HYDROCHLORIDE
     Dates: start: 20210302, end: 20210302
  18. ENALAPRIL MALEATE. [Concomitant]
     Active Substance: ENALAPRIL MALEATE
     Indication: HYPERTENSION
     Dates: start: 2005, end: 20210507
  19. FUROSEMIDE. [Concomitant]
     Active Substance: FUROSEMIDE
     Dates: start: 20210302, end: 20210302

REACTIONS (1)
  - Myelosuppression [Recovered/Resolved]

NARRATIVE: CASE EVENT DATE: 20210315
